FAERS Safety Report 6551166-9 (Version None)
Quarter: 2010Q1

REPORT INFORMATION
  Report Type: 
  Country: None (occurrence: None)
  Receive Date: 20100121
  Receipt Date: 20100107
  Transmission Date: 20100710
  Serious: Yes (Death, Hospitalization, Other)
  Sender: FDA-Public Use
  Company Number: CERZ-1001078

PATIENT
  Age: 69 Year
  Sex: Female

DRUGS (7)
  1. CEREZYME [Suspect]
     Indication: GAUCHER'S DISEASE
     Dosage: 2200 U, Q2W, INTRAVENOUS
     Route: 042
     Dates: start: 20060217, end: 20091126
  2. PERINDOPRIL ERBUMINE [Concomitant]
  3. LEVOTHYROXINE SODIUM [Concomitant]
  4. ORACILLIN (PHENOXYMETHYLPENICILLIN POTASSIUM) [Concomitant]
  5. VALACYCLOVIR HCL [Concomitant]
  6. EXJADE [Concomitant]
  7. GINKOR FORT  (GINKGO BILOBA, HEPTAMINOL HYDROCHLORIDE, TROXERUTIN) [Concomitant]

REACTIONS (10)
  - ACUTE MYELOID LEUKAEMIA RECURRENT [None]
  - ANAL NEOPLASM [None]
  - ANORECTAL CELLULITIS [None]
  - BLOOD CREATINE PHOSPHOKINASE INCREASED [None]
  - BLOOD UREA INCREASED [None]
  - CSF CULTURE POSITIVE [None]
  - CYTOMEGALOVIRUS INFECTION [None]
  - HAEMORRHAGE [None]
  - SEPTIC SHOCK [None]
  - TROPONIN INCREASED [None]
